FAERS Safety Report 8367076-0 (Version None)
Quarter: 2012Q1

REPORT INFORMATION
  Report Type: 
  Country: None (occurrence: None)
  Receive Date: 20120323
  Receipt Date: 20110405
  Transmission Date: 20120608
  Serious: Yes (Other)
  Sender: FDA-Public Use
  Company Number: 163-21880-11040816

PATIENT
  Age: 61 Year
  Sex: Female
  Weight: 77.1115 kg

DRUGS (19)
  1. PREMARIN [Concomitant]
  2. REVLIMID [Suspect]
     Indication: MULTIPLE MYELOMA
     Dosage: 15 MG, DAILY FOR 21 DAYS, PO
     Route: 048
     Dates: start: 20090107
  3. GABAPENTIN [Concomitant]
  4. VELCADE [Concomitant]
  5. SIMVASTATIN [Concomitant]
  6. INDERAL [Concomitant]
  7. ZOMETA [Concomitant]
  8. FENTANYL [Concomitant]
  9. XANAX [Concomitant]
  10. METAMUCIL (METAMUCIL ^PROCTER + GAMBLE^) [Concomitant]
  11. GLUCOSAMINE (GLUCOSAMINE) [Concomitant]
  12. PRILOSEC [Concomitant]
  13. PERCOCET [Concomitant]
  14. OXYCONTIN [Concomitant]
  15. COUMADIN [Concomitant]
  16. VITAMIN D [Concomitant]
  17. PRISTIQ (DESV ENLAXFAXINSUCCINATE) [Concomitant]
  18. DETROL LA (TOLERODINE L-TARTRATE) [Concomitant]
  19. HYDROCORT (HYDROCORTISONE ACETATE) [Concomitant]

REACTIONS (2)
  - FATIGUE [None]
  - PNEUMONIA [None]
